FAERS Safety Report 5456467-3 (Version None)
Quarter: 2007Q3

REPORT INFORMATION
  Report Type: 
  Country: None (occurrence: None)
  Receive Date: 20070914
  Receipt Date: 20070914
  Transmission Date: 20080115
  Serious: Yes (Other)
  Sender: FDA-Public Use
  Company Number: None

PATIENT
  Sex: Female
  Weight: 72.5755 kg

DRUGS (2)
  1. ZOLOFT [Suspect]
     Indication: DEPRESSION
     Dosage: 100 MG ONE ONCE DAILY
     Dates: start: 20070101, end: 20070601
  2. ZOLOFT [Suspect]
     Indication: FIBROMYALGIA
     Dosage: 100 MG ONE ONCE DAILY
     Dates: start: 20070101, end: 20070601

REACTIONS (2)
  - DEPRESSION [None]
  - THERAPEUTIC RESPONSE UNEXPECTED WITH DRUG SUBSTITUTION [None]
